FAERS Safety Report 7605467-3 (Version None)
Quarter: 2011Q3

REPORT INFORMATION
  Report Type: 
  Country: None (occurrence: None)
  Receive Date: 20110713
  Receipt Date: 20110706
  Transmission Date: 20111222
  Serious: No
  Sender: FDA-Public Use
  Company Number: US-PFIZER INC-2011115617

PATIENT
  Sex: Female
  Weight: 122 kg

DRUGS (8)
  1. NASONEX [Concomitant]
     Dosage: UNK
  2. GENOTROPIN [Suspect]
     Indication: HYPOTHALAMO-PITUITARY DISORDER
     Dosage: 0.2 MG, DAILY
     Route: 058
     Dates: start: 20110328
  3. VITAMIN D [Concomitant]
     Dosage: UNK
  4. SYNTHROID [Concomitant]
     Dosage: UNK
     Dates: start: 20110501
  5. PROZAC [Concomitant]
     Dosage: UNK
  6. GENOTROPIN [Suspect]
     Indication: GROWTH HORMONE DEFICIENCY
  7. ATENOLOL [Concomitant]
     Indication: HYPERTENSION
     Dosage: 50 MG, DAILY
  8. ESTRACE [Concomitant]
     Dosage: UNK

REACTIONS (5)
  - NAUSEA [None]
  - ACNE [None]
  - INFLUENZA [None]
  - ARTHRALGIA [None]
  - DIARRHOEA [None]
